FAERS Safety Report 25524876 (Version 2)
Quarter: 2025Q3

REPORT INFORMATION
  Report Type: Spontaneous
  Country: US (occurrence: US)
  Receive Date: 20250707
  Receipt Date: 20250708
  Transmission Date: 20251021
  Serious: No
  Sender: TORRENT PHARMA INC.
  Company Number: US-TORRENT-00014397

PATIENT
  Sex: Female

DRUGS (1)
  1. DAPSONE [Suspect]
     Active Substance: DAPSONE
     Indication: Product used for unknown indication
     Route: 065
     Dates: start: 20250527

REACTIONS (3)
  - Skin irritation [Unknown]
  - Application site discomfort [Unknown]
  - Therapy cessation [Unknown]
